FAERS Safety Report 23592034 (Version 1)
Quarter: 2024Q1

REPORT INFORMATION
  Report Type: Spontaneous
  Country: FR (occurrence: FR)
  Receive Date: 20240304
  Receipt Date: 20240304
  Transmission Date: 20240410
  Serious: Yes (Hospitalization, Other)
  Sender: FDA-Public Use
  Company Number: None

PATIENT
  Age: 41 Year
  Sex: Female
  Weight: 67.8 kg

DRUGS (12)
  1. RIFAMPIN [Suspect]
     Active Substance: RIFAMPIN
     Indication: Tuberculosis
     Dosage: 1000 MG, QD
     Route: 048
     Dates: start: 20231207, end: 20240109
  2. RIFAMPIN [Suspect]
     Active Substance: RIFAMPIN
     Dosage: 1800 MG, QD
     Route: 048
     Dates: start: 20240110, end: 20240117
  3. RIFAMPIN [Suspect]
     Active Substance: RIFAMPIN
     Dosage: 1200 MG, QD
     Route: 048
     Dates: start: 20240118, end: 20240122
  4. RIFAMPIN [Suspect]
     Active Substance: RIFAMPIN
     Dosage: 900 MG, QD
     Route: 048
     Dates: start: 20240123, end: 20240124
  5. ETHAMBUTOL HYDROCHLORIDE [Concomitant]
     Active Substance: ETHAMBUTOL HYDROCHLORIDE
     Dosage: 1000 MG, QD
     Route: 048
     Dates: start: 20231207, end: 20240124
  6. DEXAMETHASONE [Concomitant]
     Active Substance: DEXAMETHASONE
     Dosage: 28 MG, QD
     Route: 042
     Dates: start: 20240207
  7. ISONIAZID [Concomitant]
     Active Substance: ISONIAZID
     Dosage: 300 MG, QD
     Route: 048
     Dates: start: 20231207, end: 20231219
  8. ISONIAZID [Concomitant]
     Active Substance: ISONIAZID
     Dosage: 450 MG, QD
     Route: 048
     Dates: start: 20231220, end: 20240124
  9. INFLIXIMAB [Concomitant]
     Active Substance: INFLIXIMAB
     Dosage: 300 MG
     Route: 042
     Dates: start: 20240115, end: 20240129
  10. PYRAZINAMIDE [Concomitant]
     Active Substance: PYRAZINAMIDE
     Dosage: 2 G, QD
     Route: 042
     Dates: start: 20231207, end: 20231215
  11. PYRAZINAMIDE [Concomitant]
     Active Substance: PYRAZINAMIDE
     Dosage: 1.5 G, QD
     Route: 042
     Dates: start: 20231216, end: 20231218
  12. DIAMOX SEQUELS [Concomitant]
     Active Substance: ACETAZOLAMIDE
     Dosage: 1 G, QD
     Route: 048
     Dates: start: 20240112

REACTIONS (2)
  - Neutropenia [Recovered/Resolved]
  - Hepatic cytolysis [Recovered/Resolved]

NARRATIVE: CASE EVENT DATE: 20240119
